FAERS Safety Report 19877702 (Version 1)
Quarter: 2021Q3

REPORT INFORMATION
  Report Type: Spontaneous
  Country: ES (occurrence: ES)
  Receive Date: 20210923
  Receipt Date: 20210923
  Transmission Date: 20211014
  Serious: Yes (Hospitalization, Other)
  Sender: FDA-Public Use
  Company Number: NVSC2020ES322500

PATIENT
  Age: 66 Year
  Sex: Male

DRUGS (4)
  1. TAMSULOSIN [Suspect]
     Active Substance: TAMSULOSIN
     Indication: URINARY RETENTION
     Dosage: UNK, UNKNOWN
     Route: 065
  2. AMPHOTERICIN B. [Concomitant]
     Active Substance: AMPHOTERICIN B
     Indication: BRONCHOPULMONARY ASPERGILLOSIS
     Dosage: UNK (NEBULISATION)
     Route: 055
  3. VORICONAZOL [Interacting]
     Active Substance: VORICONAZOLE
     Indication: BRONCHOPULMONARY ASPERGILLOSIS
     Dosage: UNK (NEBULISATION)
     Route: 055
  4. AMLODIPINE [Concomitant]
     Active Substance: AMLODIPINE BESYLATE
     Indication: HYPERTENSION
     Dosage: 5 MG, UNKNOWN
     Route: 065

REACTIONS (4)
  - Blood pressure decreased [Recovered/Resolved]
  - Drug interaction [Recovered/Resolved]
  - Drug level increased [Unknown]
  - Hypotension [Recovered/Resolved]
